FAERS Safety Report 6240281-5 (Version None)
Quarter: 2009Q2

REPORT INFORMATION
  Report Type: 
  Country: None (occurrence: None)
  Receive Date: 20090623
  Receipt Date: 20080529
  Transmission Date: 20091009
  Serious: No
  Sender: FDA-Public Use
  Company Number: US-ASTRAZENECA-2008UW10919

PATIENT
  Age: 75 Year
  Sex: Male
  Weight: 83.9 kg

DRUGS (18)
  1. PULMICORT-100 [Suspect]
     Indication: ASTHMA
     Route: 055
  2. SINGULAIR [Concomitant]
  3. TWO ALLERGY SHOTS [Concomitant]
  4. ASTELIN [Concomitant]
  5. FORADIL [Concomitant]
  6. SPIRIVA [Concomitant]
  7. PROVENTIL-HFA [Concomitant]
  8. PROTONIX [Concomitant]
  9. MIRAPEX [Concomitant]
  10. GABAPENTIN [Concomitant]
  11. TRAMADOL HCL [Concomitant]
  12. DICLOFENAC [Concomitant]
  13. SODIUM [Concomitant]
  14. METHOCARBAMOL [Concomitant]
  15. ROZEREM [Concomitant]
  16. SIMVASTATIN [Concomitant]
  17. TESTOSTERONE [Concomitant]
  18. BYSTOLIC [Concomitant]

REACTIONS (2)
  - ASTHMA [None]
  - BRONCHIAL DISORDER [None]
